FAERS Safety Report 5342066-0 (Version None)
Quarter: 2007Q2

REPORT INFORMATION
  Report Type: 
  Country: None (occurrence: None)
  Receive Date: 20070601
  Receipt Date: 20070509
  Transmission Date: 20071010
  Serious: No
  Sender: FDA-Public Use
  Company Number: US-JNJFOC-20070502418

PATIENT
  Age: 22 Year
  Sex: Female

DRUGS (2)
  1. INVEGA [Suspect]
  2. INVEGA [Suspect]
     Indication: SCHIZOAFFECTIVE DISORDER

REACTIONS (4)
  - ANOREXIA [None]
  - DIARRHOEA [None]
  - NAUSEA [None]
  - VOMITING [None]
